FAERS Safety Report 10282185 (Version 2)
Quarter: 2014Q3

REPORT INFORMATION
  Report Type: Spontaneous
  Country: US (occurrence: US)
  Receive Date: 20140707
  Receipt Date: 20140807
  Transmission Date: 20150326
  Serious: Yes (Death, Congenital Anomaly, Other)
  Sender: FDA-Public Use
  Company Number: US-PFIZER INC-2014184979

PATIENT
  Sex: Male

DRUGS (2)
  1. FLINTSTONE VITAMINS [Concomitant]
     Dosage: UNK
     Route: 064
  2. ZOLOFT [Suspect]
     Active Substance: SERTRALINE HYDROCHLORIDE
     Indication: DEPRESSION
     Dosage: UNK
     Route: 064
     Dates: start: 20110726

REACTIONS (5)
  - Cardiac ventricular disorder [Fatal]
  - Congenital mitral valve stenosis [Fatal]
  - Hypoplastic left heart syndrome [Fatal]
  - Congenital aortic atresia [Fatal]
  - Foetal exposure during pregnancy [Fatal]
